FAERS Safety Report 18610852 (Version 1)
Quarter: 2020Q4

REPORT INFORMATION
  Report Type: Spontaneous
  Country: RO (occurrence: RO)
  Receive Date: 20201214
  Receipt Date: 20201214
  Transmission Date: 20210114
  Serious: Yes (Hospitalization)
  Sender: FDA-Public Use
  Company Number: RO-SA-2020SA348738

PATIENT

DRUGS (1)
  1. MYOZYME [Suspect]
     Active Substance: ALGLUCOSIDASE ALFA
     Indication: GLYCOGEN STORAGE DISEASE TYPE II
     Dosage: 850 MG, BIW
     Route: 042
     Dates: start: 20170823

REACTIONS (3)
  - Supraventricular tachycardia [Recovered/Resolved]
  - Tachycardia [Unknown]
  - Product use issue [Unknown]

NARRATIVE: CASE EVENT DATE: 202004
